FAERS Safety Report 15731740 (Version 1)
Quarter: 2018Q4

REPORT INFORMATION
  Report Type: Spontaneous
  Country: GB (occurrence: GB)
  Receive Date: 20181217
  Receipt Date: 20181217
  Transmission Date: 20190205
  Serious: Yes (Death)
  Sender: FDA-Public Use
  Company Number: GB-PFIZER INC-07H-167-0313294-00

PATIENT
  Age: 62 Year
  Sex: Male

DRUGS (3)
  1. REMIFENTANIL [Concomitant]
     Active Substance: REMIFENTANIL
     Dosage: 5 MG/ML
  2. REMIFENTANIL [Suspect]
     Active Substance: REMIFENTANIL
     Indication: SEDATIVE THERAPY
     Dosage: UNK
     Route: 042
  3. PROPOFOL. [Suspect]
     Active Substance: PROPOFOL
     Indication: SEDATIVE THERAPY
     Dosage: 1.5 MG/ML
     Route: 042

REACTIONS (4)
  - Cardiac arrest [Fatal]
  - Apnoea [Fatal]
  - Brain injury [Fatal]
  - Sedation [Fatal]
